FAERS Safety Report 9262108 (Version 1)
Quarter: 2013Q2

REPORT INFORMATION
  Report Type: Spontaneous
  Country: BY (occurrence: BY)
  Receive Date: 20130430
  Receipt Date: 20130430
  Transmission Date: 20140414
  Serious: Yes (Hospitalization)
  Sender: FDA-Public Use
  Company Number: BY-ABBOTT-13X-209-1081207-00

PATIENT
  Age: 7 Year
  Sex: Male
  Weight: 22 kg

DRUGS (2)
  1. KLACID [Suspect]
     Indication: BRONCHITIS
     Dosage: UNIT DOSE: 250 MG/5 ML
     Route: 048
     Dates: start: 20130420, end: 20130420
  2. ACC [Concomitant]
     Indication: BRONCHITIS
     Dates: start: 20130420

REACTIONS (6)
  - Gastrointestinal infection [Unknown]
  - Vomiting [Recovered/Resolved]
  - Product quality issue [Unknown]
  - Somnolence [Recovered/Resolved]
  - Dysgeusia [Recovered/Resolved]
  - Dizziness [Recovered/Resolved]
